FAERS Safety Report 19753583 (Version 1)
Quarter: 2021Q3

REPORT INFORMATION
  Report Type: Spontaneous
  Country: US (occurrence: US)
  Receive Date: 20210826
  Receipt Date: 20210826
  Transmission Date: 20211014
  Serious: No
  Sender: FDA-Public Use
  Company Number: US-HORIZON THERAPEUTICS-HZN-2021-002470

PATIENT
  Sex: Female
  Weight: 89.8 kg

DRUGS (1)
  1. TEPEZZA [Suspect]
     Active Substance: TEPROTUMUMAB-TRBW
     Indication: TOXIC GOITRE
     Dosage: 0 ML STERILE WATER. 38.2 ML = 1820 MG
     Route: 065

REACTIONS (2)
  - Exophthalmos [Unknown]
  - Vision blurred [Unknown]
